FAERS Safety Report 12607626 (Version 1)
Quarter: 2016Q3

REPORT INFORMATION
  Report Type: Spontaneous
  Country: DE (occurrence: DE)
  Receive Date: 20160729
  Receipt Date: 20160729
  Transmission Date: 20161109
  Serious: Yes (Congenital Anomaly, Other)
  Sender: FDA-Public Use
  Company Number: DE-TEVA-678981GER

PATIENT
  Age: 1 Day
  Sex: Male

DRUGS (3)
  1. FEMIBION [Concomitant]
     Active Substance: VITAMINS
     Indication: PROPHYLAXIS OF NEURAL TUBE DEFECT
     Dosage: .8 MILLIGRAM DAILY;
     Route: 064
     Dates: start: 20150701, end: 20160408
  2. PARACETAMOL [Concomitant]
     Active Substance: ACETAMINOPHEN
     Indication: RESPIRATORY TRACT INFECTION
     Dosage: 1500 MILLIGRAM DAILY;
     Route: 064
  3. CICLOSPORIN A [Suspect]
     Active Substance: CYCLOSPORINE
     Indication: SYSTEMIC SCLERODERMA
     Dosage: 150 MILLIGRAM DAILY;
     Route: 064
     Dates: start: 20150701, end: 20160408

REACTIONS (4)
  - Atrial septal defect [Recovered/Resolved]
  - Neonatal pneumonia [Recovered/Resolved]
  - Foetal exposure during pregnancy [Unknown]
  - Congenital choroid plexus cyst [Not Recovered/Not Resolved]

NARRATIVE: CASE EVENT DATE: 20160408
